FAERS Safety Report 20825150 (Version 9)
Quarter: 2022Q4

REPORT INFORMATION
  Report Type: Other
  Country: CA (occurrence: None)
  Receive Date: 20220513
  Receipt Date: 20221206
  Transmission Date: 20230112
  Serious: Yes (Other)
  Sender: FDA-Public Use
  Company Number: CA-ROCHE-2951033

PATIENT
  Age: 40 Year
  Sex: Female
  Weight: 98.6 kg

DRUGS (19)
  1. OCREVUS [Suspect]
     Active Substance: OCRELIZUMAB
     Indication: Relapsing-remitting multiple sclerosis
     Dosage: 300 MG AT DAY 0 AND 14, THEN 600 MG EVERY 6 MONTH
     Route: 042
     Dates: start: 20211102
  2. GRAVOL [Concomitant]
     Active Substance: DIMENHYDRINATE
  3. BENADRYL [Concomitant]
     Active Substance: DIPHENHYDRAMINE HYDROCHLORIDE
  4. PREDNISONE [Concomitant]
     Active Substance: PREDNISONE
  5. VITAMIN C [Concomitant]
     Active Substance: ASCORBIC ACID
  6. MODAFINIL [Concomitant]
     Active Substance: MODAFINIL
  7. GABAPENTIN [Concomitant]
     Active Substance: GABAPENTIN
  8. ESCITALOPRAM [Concomitant]
     Active Substance: ESCITALOPRAM OXALATE
  9. PANTOPRAZOLE [Concomitant]
     Active Substance: PANTOPRAZOLE
  10. MAGNESIUM [Concomitant]
     Active Substance: MAGNESIUM
  11. CLARITIN [Concomitant]
     Active Substance: LORATADINE
  12. MIRTAZAPINE [Concomitant]
     Active Substance: MIRTAZAPINE
  13. QUETIAPINE [Concomitant]
     Active Substance: QUETIAPINE
  14. OMEGA 3 [Concomitant]
     Active Substance: CAPSAICIN
  15. METAMUCIL [Concomitant]
     Active Substance: PLANTAGO SEED
  16. LORATADINE [Concomitant]
     Active Substance: LORATADINE
  17. ADVIL [Concomitant]
     Active Substance: IBUPROFEN
  18. TYLENOL [Concomitant]
     Active Substance: ACETAMINOPHEN
  19. ROBAXACET [Concomitant]
     Active Substance: ACETAMINOPHEN\METHOCARBAMOL

REACTIONS (17)
  - Trismus [Not Recovered/Not Resolved]
  - Post procedural infection [Recovered/Resolved]
  - Joint dislocation [Unknown]
  - Scoliosis [Unknown]
  - Trigeminal neuralgia [Unknown]
  - Pain [Unknown]
  - Infusion related reaction [Recovered/Resolved]
  - Candida infection [Not Recovered/Not Resolved]
  - Drug hypersensitivity [Unknown]
  - Sinusitis [Unknown]
  - Fungal infection [Recovering/Resolving]
  - Abdominal discomfort [Unknown]
  - Diarrhoea [Unknown]
  - Influenza like illness [Unknown]
  - Seizure [Unknown]
  - Contusion [Unknown]
  - Insomnia [Unknown]

NARRATIVE: CASE EVENT DATE: 20211102
